FAERS Safety Report 9745027 (Version 50)
Quarter: 2022Q1

REPORT INFORMATION
  Report Type: Other
  Country: CA (occurrence: None)
  Receive Date: 20131211
  Receipt Date: 20220211
  Transmission Date: 20220423
  Serious: Yes (Hospitalization, Other)
  Sender: FDA-Public Use
  Company Number: CA-ROCHE-681181

PATIENT
  Age: 31 Year
  Sex: Female
  Weight: 76.2 kg

DRUGS (22)
  1. RITUXAN [Suspect]
     Active Substance: RITUXIMAB
     Indication: Rheumatoid arthritis
     Dosage: SECOND INFUSION INTERRUPTED AND RESTARTED AT 12.25 ML, THEN 25 ML AND APPROX. 75 ML WAS ABSORBED.
     Route: 042
     Dates: start: 20100108, end: 20100122
  2. ACTEMRA [Suspect]
     Active Substance: TOCILIZUMAB
     Indication: Rheumatoid arthritis
     Route: 042
     Dates: start: 20130521
  3. ACTEMRA [Suspect]
     Active Substance: TOCILIZUMAB
     Route: 042
     Dates: start: 20130618
  4. ACTEMRA [Suspect]
     Active Substance: TOCILIZUMAB
     Route: 042
     Dates: start: 20150527
  5. ACTEMRA [Suspect]
     Active Substance: TOCILIZUMAB
     Dosage: RECEIVED OUTSIDE RAP
     Route: 042
     Dates: start: 20180323, end: 201807
  6. ACTEMRA [Suspect]
     Active Substance: TOCILIZUMAB
     Route: 042
     Dates: start: 201911
  7. ACTEMRA [Suspect]
     Active Substance: TOCILIZUMAB
     Indication: Rheumatoid arthritis
     Route: 058
     Dates: start: 20181217, end: 2019
  8. SIMPONI [Suspect]
     Active Substance: GOLIMUMAB
     Indication: Rheumatoid arthritis
     Route: 065
     Dates: start: 201710, end: 201803
  9. XELJANZ [Suspect]
     Active Substance: TOFACITINIB CITRATE
     Indication: Product used for unknown indication
     Route: 065
  10. DIPHENHYDRAMINE HYDROCHLORIDE [Concomitant]
     Active Substance: DIPHENHYDRAMINE HYDROCHLORIDE
     Indication: Premedication
     Route: 048
     Dates: start: 20100108, end: 20100122
  11. ACETAMINOPHEN [Concomitant]
     Active Substance: ACETAMINOPHEN
     Indication: Premedication
     Route: 048
     Dates: start: 20100108, end: 20100122
  12. SODIUM CHLORIDE [Concomitant]
     Active Substance: SODIUM CHLORIDE
     Dosage: TO KEEP IV LINE OPEN?ALSO RECEIVED FOR ANAPHYLACTIC REACTION
     Route: 042
     Dates: start: 20100122, end: 20100122
  13. PREDNISONE [Concomitant]
     Active Substance: PREDNISONE
     Indication: Product used for unknown indication
  14. SULFASALAZINE [Concomitant]
     Active Substance: SULFASALAZINE
     Route: 048
  15. PLAQUENIL [Concomitant]
     Active Substance: HYDROXYCHLOROQUINE SULFATE
  16. METHOTREXATE [Concomitant]
     Active Substance: METHOTREXATE
     Route: 058
  17. FOLIC ACID [Concomitant]
     Active Substance: FOLIC ACID
  18. METHYLPREDNISOLONE [Concomitant]
     Active Substance: METHYLPREDNISOLONE
     Indication: Premedication
     Route: 042
     Dates: start: 20100108, end: 20100122
  19. OXYCODONE [Concomitant]
     Active Substance: OXYCODONE
  20. OXAZEPAM [Concomitant]
     Active Substance: OXAZEPAM
     Route: 048
  21. PERCOCET [Concomitant]
     Active Substance: ACETAMINOPHEN\OXYCODONE HYDROCHLORIDE
     Dosage: 5-325 MG
  22. HYDROXYCHLOROQUINE SULFATE [Concomitant]
     Active Substance: HYDROXYCHLOROQUINE SULFATE
     Route: 048

REACTIONS (47)
  - Fall [Unknown]
  - Upper limb fracture [Unknown]
  - Foot fracture [Not Recovered/Not Resolved]
  - Ligament sprain [Unknown]
  - Swelling [Unknown]
  - Vascular rupture [Unknown]
  - Procedural haemorrhage [Unknown]
  - Anaphylactic reaction [Recovered/Resolved]
  - Vomiting [Recovering/Resolving]
  - Nausea [Recovered/Resolved]
  - Pain [Unknown]
  - Arthralgia [Not Recovered/Not Resolved]
  - Bone disorder [Not Recovered/Not Resolved]
  - Weight increased [Recovering/Resolving]
  - Localised infection [Not Recovered/Not Resolved]
  - Cellulitis [Not Recovered/Not Resolved]
  - Wound infection [Recovering/Resolving]
  - Infection [Unknown]
  - Ill-defined disorder [Not Recovered/Not Resolved]
  - Headache [Recovered/Resolved]
  - Joint swelling [Unknown]
  - Body temperature decreased [Unknown]
  - Anxiety [Not Recovered/Not Resolved]
  - Body temperature decreased [Unknown]
  - Hypotension [Unknown]
  - Heart rate increased [Unknown]
  - Weight decreased [Recovering/Resolving]
  - Agitation [Unknown]
  - Ill-defined disorder [Unknown]
  - Nausea [Unknown]
  - Vomiting [Unknown]
  - Drug ineffective [Unknown]
  - Inflammation [Not Recovered/Not Resolved]
  - Weight abnormal [Unknown]
  - Rheumatoid arthritis [Unknown]
  - Drug hypersensitivity [Unknown]
  - Impaired healing [Recovering/Resolving]
  - C-reactive protein increased [Unknown]
  - Poor quality sleep [Unknown]
  - Blood pressure increased [Unknown]
  - Heart rate decreased [Unknown]
  - Blood pressure diastolic increased [Unknown]
  - Heart rate increased [Unknown]
  - Blood pressure systolic increased [Unknown]
  - Alopecia [Unknown]
  - Oxygen saturation decreased [Unknown]
  - Wound dehiscence [Unknown]

NARRATIVE: CASE EVENT DATE: 20100122
